FAERS Safety Report 5860057-8 (Version None)
Quarter: 2008Q3

REPORT INFORMATION
  Report Type: 
  Country: None (occurrence: None)
  Receive Date: 20080827
  Receipt Date: 20080813
  Transmission Date: 20090109
  Serious: Yes (Death, Life-Threatening, Other)
  Sender: FDA-Public Use
  Company Number: US-ELI_LILLY_AND_COMPANY-US200808002956

PATIENT
  Age: 76 Year
  Sex: Male

DRUGS (1)
  1. XIGRIS [Suspect]
     Indication: POST PROCEDURAL SEPSIS
     Dates: start: 20080801, end: 20080810

REACTIONS (4)
  - BLOOD PRESSURE ABNORMAL [None]
  - BLOOD PRESSURE DECREASED [None]
  - CARDIO-RESPIRATORY ARREST [None]
  - DEATH [None]
